FAERS Safety Report 11553256 (Version 1)
Quarter: 2015Q3

REPORT INFORMATION
  Report Type: Spontaneous
  Country: US (occurrence: None)
  Receive Date: 20150924
  Receipt Date: 20150924
  Transmission Date: 20151125
  Serious: Yes (Life-Threatening, Hospitalization, Disabling)
  Sender: FDA-Public Use
  Company Number: None

PATIENT
  Age: 84 Year
  Sex: Female
  Weight: 74.5 kg

DRUGS (19)
  1. TYLENOL [Concomitant]
     Active Substance: ACETAMINOPHEN
  2. ONDANSETRON HCL (ZOFRAN, AS HYDROCHLORIDE) [Concomitant]
  3. DILTIAZEM (CARDIZEM) [Concomitant]
  4. ASPIRIN. [Concomitant]
     Active Substance: ASPIRIN
  5. LACTOBACILLUS ACIDOPH + BULGAR (FLORANEX) [Concomitant]
  6. ZOLOFT [Concomitant]
     Active Substance: SERTRALINE HYDROCHLORIDE
  7. ISOSORBIDE DINITRATE (ISORDIL) [Concomitant]
  8. OMEPRAZOLE (PRILOSEC) [Concomitant]
  9. ELIQUIS [Suspect]
     Active Substance: APIXABAN
     Indication: ATRIAL FIBRILLATION
     Dosage: 1 PILL
     Route: 048
     Dates: end: 20150917
  10. SPIRONOLACTONE (ALDACTONE) [Concomitant]
  11. LORAZEPAM (ATIVAN) [Concomitant]
  12. ALLOPURINOL (ZYLOPRIM) [Concomitant]
  13. CALTRATE 600+D [Concomitant]
  14. METOPROLOL SUCCINATE (TOPROL-XL) [Concomitant]
  15. DIGOXIN (LANOXIN) [Concomitant]
  16. LIPITOR [Concomitant]
     Active Substance: ATORVASTATIN CALCIUM
  17. CALCIUM-CHOLECALCIFEROL, D3 (CALTRATE 600+D) [Concomitant]
  18. LASIX [Concomitant]
     Active Substance: FUROSEMIDE
  19. TRAZODONE (DESYREL) [Concomitant]

REACTIONS (3)
  - Seizure [None]
  - Subdural haematoma [None]
  - Unresponsive to stimuli [None]

NARRATIVE: CASE EVENT DATE: 20150917
